FAERS Safety Report 5049636-8 (Version None)
Quarter: 2006Q3

REPORT INFORMATION
  Report Type: 
  Country: None (occurrence: None)
  Receive Date: 20060706
  Receipt Date: 20060620
  Transmission Date: 20061208
  Serious: Yes (Hospitalization)
  Sender: FDA-Public Use
  Company Number: 8017551

PATIENT
  Sex: Female

DRUGS (1)
  1. KEPPRA [Suspect]
     Indication: EPILEPSY
     Dosage: 1750 MG 2/D PO
     Route: 048
     Dates: start: 20010101

REACTIONS (2)
  - PNEUMOTHORAX [None]
  - STATUS EPILEPTICUS [None]
